FAERS Safety Report 8367551-9 (Version None)
Quarter: 2012Q1

REPORT INFORMATION
  Report Type: 
  Country: None (occurrence: None)
  Receive Date: 20120323
  Receipt Date: 20111110
  Transmission Date: 20120608
  Serious: Yes (Other)
  Sender: FDA-Public Use
  Company Number: 163-21880-11111622

PATIENT
  Age: 57 Year
  Sex: Female

DRUGS (3)
  1. REVLIMID [Suspect]
     Indication: MULTIPLE MYELOMA
     Dosage: 5 MG, 1 IN 1 D, PO ; 25 MG, 1 IN 1 D, PO ; 5MG-10MG-5MG, PO
     Route: 048
     Dates: start: 20090701
  2. REVLIMID [Suspect]
     Indication: MULTIPLE MYELOMA
     Dosage: 5 MG, 1 IN 1 D, PO ; 25 MG, 1 IN 1 D, PO ; 5MG-10MG-5MG, PO
     Route: 048
     Dates: start: 20090801
  3. REVLIMID [Suspect]
     Indication: MULTIPLE MYELOMA
     Dosage: 5 MG, 1 IN 1 D, PO ; 25 MG, 1 IN 1 D, PO ; 5MG-10MG-5MG, PO
     Route: 048
     Dates: start: 20090901

REACTIONS (1)
  - CEREBROVASCULAR ACCIDENT [None]
